FAERS Safety Report 13384037 (Version 1)
Quarter: 2017Q1

REPORT INFORMATION
  Report Type: Report from Study
  Country: BR (occurrence: BR)
  Receive Date: 20170329
  Receipt Date: 20170329
  Transmission Date: 20170429
  Serious: Yes (Other)
  Sender: FDA-Public Use
  Company Number: PHHY2014BR184006

PATIENT
  Age: 64 Year
  Sex: Female
  Weight: 65 kg

DRUGS (6)
  1. ATENOLOL. [Concomitant]
     Active Substance: ATENOLOL
     Indication: HYPERTENSION
     Dosage: 2 DF, QD (MORNING)
     Route: 065
  2. LOSARTANA POTASSICA [Concomitant]
     Active Substance: LOSARTAN
     Indication: POLLAKIURIA
     Dosage: 1 DF, QD (NIGHT)
     Route: 065
  3. GILENYA [Suspect]
     Active Substance: FINGOLIMOD HYDROCHLORIDE
     Indication: MULTIPLE SCLEROSIS
     Dosage: 0.5 MG, QD
     Route: 048
     Dates: start: 201212
  4. MODURETIC 5-50 [Concomitant]
     Active Substance: AMILORIDE HYDROCHLORIDE\HYDROCHLOROTHIAZIDE
     Indication: POLYURIA
     Dosage: 1 DF, QD (MORNING)
     Route: 065
  5. GILENYA [Suspect]
     Active Substance: FINGOLIMOD HYDROCHLORIDE
     Dosage: 0.5 MG, QOD
     Route: 048
     Dates: start: 20151106
  6. OLCADIL [Concomitant]
     Active Substance: CLOXAZOLAM
     Indication: AGGRESSION
     Dosage: 1 DF, BID (MORNING/NIGHT)
     Route: 065

REACTIONS (18)
  - Lymphadenopathy [Unknown]
  - Dizziness [Unknown]
  - Infection [Recovering/Resolving]
  - Diarrhoea [Recovered/Resolved]
  - Blood glucose abnormal [Unknown]
  - Rash [Recovered/Resolved]
  - Pain [Recovering/Resolving]
  - Prescribed underdose [Unknown]
  - Immunodeficiency [Recovering/Resolving]
  - Herpes zoster [Recovering/Resolving]
  - Muscle atrophy [Unknown]
  - Asthenia [Unknown]
  - Drug monitoring procedure not performed [Unknown]
  - Pharyngitis [Recovering/Resolving]
  - Cough [Recovering/Resolving]
  - Gastrointestinal infection [Recovering/Resolving]
  - Balance disorder [Unknown]
  - Vomiting [Recovered/Resolved]

NARRATIVE: CASE EVENT DATE: 201508
